FAERS Safety Report 21509059 (Version 6)
Quarter: 2023Q1

REPORT INFORMATION
  Report Type: Report from Study
  Country: US (occurrence: US)
  Receive Date: 20221026
  Receipt Date: 20230207
  Transmission Date: 20230417
  Serious: Yes (Other)
  Sender: FDA-Public Use
  Company Number: US-HORIZON THERAPEUTICS-HZN-2022-007033

PATIENT

DRUGS (6)
  1. TEPEZZA [Suspect]
     Active Substance: TEPROTUMUMAB-TRBW
     Indication: Endocrine ophthalmopathy
     Dosage: FIRST INFUSION (20 MG/KG, EVERY 3 WEEKS)
     Route: 042
     Dates: start: 20220908
  2. TEPEZZA [Suspect]
     Active Substance: TEPROTUMUMAB-TRBW
     Dosage: SECOND INFUSION (20 MG/KG, EVERY 3 WEEKS)
     Route: 042
     Dates: start: 20220929
  3. TEPEZZA [Suspect]
     Active Substance: TEPROTUMUMAB-TRBW
     Dosage: 3RD INFUSION (20 MG/KG, EVERY 3 WEEKS)
     Route: 042
     Dates: start: 20221110
  4. TEPEZZA [Suspect]
     Active Substance: TEPROTUMUMAB-TRBW
     Dosage: 4TH INFUSION (20 MG/KG, EVERY 3 WEEKS)
     Route: 042
     Dates: start: 20221201
  5. TEPEZZA [Suspect]
     Active Substance: TEPROTUMUMAB-TRBW
     Dosage: (UNK) INFUSION
     Route: 042
     Dates: start: 20221222
  6. TEPEZZA [Suspect]
     Active Substance: TEPROTUMUMAB-TRBW
     Dosage: 7TH INFUSION
     Route: 042
     Dates: start: 20230202

REACTIONS (10)
  - Diarrhoea haemorrhagic [Unknown]
  - Diverticulitis [Unknown]
  - Retching [Unknown]
  - Abdominal pain upper [Unknown]
  - Blood glucose increased [Unknown]
  - Hypoacusis [Unknown]
  - Nausea [Unknown]
  - Tinnitus [Unknown]
  - Diplopia [Recovered/Resolved]
  - Inappropriate schedule of product administration [Unknown]

NARRATIVE: CASE EVENT DATE: 20220101
